FAERS Safety Report 6615874-3 (Version None)
Quarter: 2010Q1

REPORT INFORMATION
  Report Type: 
  Country: None (occurrence: None)
  Receive Date: 20100305
  Receipt Date: 20100303
  Transmission Date: 20100710
  Serious: Yes (Death)
  Sender: FDA-Public Use
  Company Number: AU-SANOFI-AVENTIS-2010SA012165

PATIENT

DRUGS (2)
  1. OXALIPLATIN [Suspect]
     Route: 041
  2. XELODA [Suspect]
     Route: 065

REACTIONS (1)
  - ILEUS [None]
